FAERS Safety Report 11392122 (Version 1)
Quarter: 2015Q3

REPORT INFORMATION
  Report Type: Spontaneous
  Country: US (occurrence: None)
  Receive Date: 20150817
  Receipt Date: 20150817
  Transmission Date: 20151125
  Serious: Yes (Other)
  Sender: FDA-Public Use
  Company Number: 2014P1002192

PATIENT
  Age: 60 Year
  Sex: Female
  Weight: 76.66 kg

DRUGS (1)
  1. TROKENDI XR [Suspect]
     Active Substance: TOPIRAMATE
     Indication: MIGRAINE
     Dates: start: 20140208, end: 20140209

REACTIONS (5)
  - Dyspnoea [None]
  - Cognitive disorder [None]
  - Feeling abnormal [None]
  - Dizziness [None]
  - Off label use [None]

NARRATIVE: CASE EVENT DATE: 20140209
